FAERS Safety Report 25272883 (Version 1)
Quarter: 2025Q2

REPORT INFORMATION
  Report Type: Other
  Country: ES (occurrence: ES)
  Receive Date: 20250506
  Receipt Date: 20250506
  Transmission Date: 20250716
  Serious: Yes (Life-Threatening, Hospitalization)
  Sender: STRIDES
  Company Number: None

PATIENT
  Age: 18 Year
  Sex: Male

DRUGS (3)
  1. GABAPENTIN [Interacting]
     Active Substance: GABAPENTIN
     Indication: Substance use
     Route: 048
     Dates: start: 20230307, end: 20230307
  2. PREGABALIN [Interacting]
     Active Substance: PREGABALIN
     Indication: Substance use
     Route: 045
     Dates: start: 20230307, end: 20230307
  3. RIVOTRIL [Interacting]
     Active Substance: CLONAZEPAM
     Indication: Substance use
     Route: 048
     Dates: start: 20230307, end: 20230307

REACTIONS (3)
  - Respiratory acidosis [Recovered/Resolved]
  - Depressed level of consciousness [Recovered/Resolved]
  - Intentional overdose [Recovered/Resolved]

NARRATIVE: CASE EVENT DATE: 20230307
